FAERS Safety Report 13082509 (Version 4)
Quarter: 2017Q3

REPORT INFORMATION
  Report Type: Report from Study
  Country: US (occurrence: US)
  Receive Date: 20170103
  Receipt Date: 20170719
  Transmission Date: 20171127
  Serious: Yes (Hospitalization)
  Sender: FDA-Public Use
  Company Number: US-ACTELION-A-NJ2016-147621

PATIENT
  Age: 64 Year
  Sex: Female
  Weight: 57.6 kg

DRUGS (1)
  1. VELETRI [Suspect]
     Active Substance: EPOPROSTENOL
     Indication: PULMONARY ARTERIAL HYPERTENSION
     Dosage: 44.5 NG/KG, PER MIN
     Route: 042
     Dates: start: 20110512

REACTIONS (7)
  - Volvulus [Unknown]
  - Pneumothorax [Unknown]
  - Catheter site rash [Unknown]
  - Abdominal pain lower [Unknown]
  - Gastrointestinal necrosis [Unknown]
  - Pleural effusion [Unknown]
  - Pain in extremity [Unknown]
